FAERS Safety Report 4587556-3 (Version None)
Quarter: 2005Q1

REPORT INFORMATION
  Report Type: 
  Country: None (occurrence: None)
  Receive Date: 20050215
  Receipt Date: 20030408
  Transmission Date: 20050727
  Serious: No
  Sender: FDA-Public Use
  Company Number: C03-C-029

PATIENT

DRUGS (2)
  1. LITHIUM CARBONATE CAP [Suspect]
  2. LITHIUM CARBONATE CAP [Suspect]

REACTIONS (1)
  - ANTIPSYCHOTIC DRUG LEVEL INCREASED [None]
